FAERS Safety Report 23064146 (Version 1)
Quarter: 2023Q4

REPORT INFORMATION
  Report Type: Spontaneous
  Country: FR (occurrence: FR)
  Receive Date: 20231013
  Receipt Date: 20231013
  Transmission Date: 20240110
  Serious: Yes (Death)
  Sender: FDA-Public Use
  Company Number: None

PATIENT
  Age: 30 Year
  Sex: Male

DRUGS (10)
  1. DIAZEPAM [Suspect]
     Active Substance: DIAZEPAM
     Indication: Product used for unknown indication
     Dates: end: 20221106
  2. CODEINE [Suspect]
     Active Substance: CODEINE
     Indication: Product used for unknown indication
     Dates: end: 20221106
  3. OXAZEPAM [Suspect]
     Active Substance: OXAZEPAM
     Indication: Product used for unknown indication
     Dates: end: 20221106
  4. CYAMEMAZINE [Suspect]
     Active Substance: CYAMEMAZINE
     Indication: Product used for unknown indication
     Dates: end: 20221106
  5. DRONABINOL [Suspect]
     Active Substance: DRONABINOL
     Indication: Product used for unknown indication
     Dates: end: 20221106
  6. MORPHINE [Suspect]
     Active Substance: MORPHINE
     Indication: Product used for unknown indication
     Dates: end: 20221106
  7. 6-ACETYLMORPHINE [Suspect]
     Active Substance: 6-ACETYLMORPHINE
     Indication: Product used for unknown indication
     Dates: end: 20221106
  8. TEMAZEPAM [Suspect]
     Active Substance: TEMAZEPAM
     Indication: Product used for unknown indication
     Dates: end: 20221106
  9. NORDAZEPAM [Suspect]
     Active Substance: NORDAZEPAM
     Indication: Product used for unknown indication
     Dates: end: 20221106
  10. VORTIOXETINE HYDROBROMIDE [Suspect]
     Active Substance: VORTIOXETINE HYDROBROMIDE
     Indication: Product used for unknown indication
     Dates: end: 20221106

REACTIONS (3)
  - Aspiration [Fatal]
  - Poisoning [Fatal]
  - Asphyxia [Fatal]
